FAERS Safety Report 25276066 (Version 2)
Quarter: 2025Q2

REPORT INFORMATION
  Report Type: Spontaneous
  Country: JP (occurrence: JP)
  Receive Date: 20250507
  Receipt Date: 20250602
  Transmission Date: 20250716
  Serious: Yes (Death, Other)
  Sender: GLAXOSMITHKLINE
  Company Number: JP-GSK-JP2025053419

PATIENT

DRUGS (2)
  1. MOMELOTINIB [Suspect]
     Active Substance: MOMELOTINIB
     Indication: Myelofibrosis
     Dates: start: 20250410
  2. RUXOLITINIB [Concomitant]
     Active Substance: RUXOLITINIB
     Indication: Myelofibrosis
     Dates: start: 201901, end: 202504

REACTIONS (1)
  - Myelofibrosis [Fatal]
